FAERS Safety Report 16988691 (Version 1)
Quarter: 2019Q4

REPORT INFORMATION
  Report Type: Spontaneous
  Country: CN (occurrence: CN)
  Receive Date: 20191104
  Receipt Date: 20191104
  Transmission Date: 20200122
  Serious: Yes (Other)
  Sender: FDA-Public Use
  Company Number: CN-BRISTOL-MYERS SQUIBB COMPANY-BMS-2019-105120

PATIENT
  Age: 58 Year
  Sex: Female
  Weight: 60 kg

DRUGS (3)
  1. SOMATOSTATIN [Suspect]
     Active Substance: SOMATOSTATIN
     Indication: OESOPHAGEAL VARICES HAEMORRHAGE
     Dosage: 3 MILLIGRAM, QD
     Route: 041
     Dates: start: 20190916, end: 20190918
  2. BARACLUDE [Suspect]
     Active Substance: ENTECAVIR
     Indication: HEPATITIS
     Dosage: 0.5 MILLIGRAM, QD
     Route: 048
     Dates: start: 20190916, end: 20190928
  3. ZE TONG (TORASEMIDE) [Suspect]
     Active Substance: TORSEMIDE
     Indication: ABDOMINAL WALL OEDEMA
     Dosage: 10 MILLIGRAM, QD
     Route: 042
     Dates: start: 20190916, end: 20190920

REACTIONS (1)
  - Hypokalaemia [Recovered/Resolved]

NARRATIVE: CASE EVENT DATE: 20190918
